FAERS Safety Report 12349994 (Version 1)
Quarter: 2016Q2

REPORT INFORMATION
  Report Type: Spontaneous
  Country: US (occurrence: None)
  Receive Date: 20160509
  Receipt Date: 20160509
  Transmission Date: 20160815
  Serious: Yes (Death, Hospitalization)
  Sender: FDA-Public Use
  Company Number: None

PATIENT
  Age: 7 Year
  Sex: Male
  Weight: 26.8 kg

DRUGS (5)
  1. ONCASPAR [Suspect]
     Active Substance: PEGASPARGASE
     Dates: end: 20160405
  2. DEXAMETHASONE. [Suspect]
     Active Substance: DEXAMETHASONE
     Dates: end: 20160428
  3. VINCRISTINE SULFATE. [Suspect]
     Active Substance: VINCRISTINE SULFATE
     Dates: end: 20160422
  4. CYTARABINE. [Suspect]
     Active Substance: CYTARABINE
     Dates: end: 20160331
  5. METHOTREXATE [Suspect]
     Active Substance: METHOTREXATE
     Dates: end: 20160408

REACTIONS (20)
  - Activated partial thromboplastin time prolonged [None]
  - Shock [None]
  - Fibrin D dimer increased [None]
  - Thrombocytopenia [None]
  - Pathogen resistance [None]
  - Encephalitis haemorrhagic [None]
  - Renal failure [None]
  - Escherichia urinary tract infection [None]
  - Hyperbilirubinaemia [None]
  - Drug level increased [None]
  - Transaminases increased [None]
  - Apnoea [None]
  - International normalised ratio increased [None]
  - Blood fibrinogen decreased [None]
  - Anaemia [None]
  - Unresponsive to stimuli [None]
  - Pericardial effusion [None]
  - Hyperglycaemia [None]
  - Metabolic acidosis [None]
  - Pulmonary haemorrhage [None]

NARRATIVE: CASE EVENT DATE: 20160429
